FAERS Safety Report 4737449-3 (Version None)
Quarter: 2005Q3

REPORT INFORMATION
  Report Type: 
  Country: None (occurrence: None)
  Receive Date: 20050805
  Receipt Date: 20050726
  Transmission Date: 20060218
  Serious: Yes (Death, Life-Threatening)
  Sender: FDA-Public Use
  Company Number: 216400

PATIENT
  Age: 14 Year
  Sex: Male
  Weight: 38.2 kg

DRUGS (2)
  1. NUTROPIN [Suspect]
     Indication: GROWTH HORMONE DEFICIENCY
     Dosage: 1.6 MG, QD, SUBCUTANEOUS
     Route: 058
     Dates: start: 20001114, end: 20050529
  2. CORTEF [Concomitant]

REACTIONS (24)
  - ABDOMINAL PAIN UPPER [None]
  - ACUTE PULMONARY OEDEMA [None]
  - BLOOD BILIRUBIN INCREASED [None]
  - BLOOD UREA INCREASED [None]
  - DISSEMINATED INTRAVASCULAR COAGULATION [None]
  - DYSPNOEA [None]
  - DYSURIA [None]
  - FATIGUE [None]
  - GENERAL PHYSICAL HEALTH DETERIORATION [None]
  - HAEMOLYSIS [None]
  - HAEMOTHORAX [None]
  - HYPERAEMIA [None]
  - HYPONATRAEMIA [None]
  - LEUKOCYTOSIS [None]
  - LOSS OF CONSCIOUSNESS [None]
  - PALLOR [None]
  - PNEUMONIA VIRAL [None]
  - PULMONARY CONGESTION [None]
  - PYREXIA [None]
  - RESTLESSNESS [None]
  - SHIFT TO THE LEFT [None]
  - SUBARACHNOID HAEMORRHAGE [None]
  - TACHYCARDIA [None]
  - VOMITING [None]
